FAERS Safety Report 20484935 (Version 2)
Quarter: 2022Q2

REPORT INFORMATION
  Report Type: Spontaneous
  Country: US (occurrence: US)
  Receive Date: 20220217
  Receipt Date: 20220403
  Transmission Date: 20220721
  Serious: No
  Sender: FDA-Public Use
  Company Number: US-SA-SAC20220214000134

PATIENT
  Age: 64 Year
  Sex: Female

DRUGS (4)
  1. DUPIXENT [Suspect]
     Active Substance: DUPILUMAB
     Indication: Nasal polyps
     Dosage: 300 MG, QOW
     Route: 058
  2. DUPIXENT [Suspect]
     Active Substance: DUPILUMAB
     Indication: Asthma
  3. ACYCLOVIR [Concomitant]
     Active Substance: ACYCLOVIR
     Indication: Oral herpes
  4. ABREVA [Concomitant]
     Active Substance: DOCOSANOL
     Indication: Oral herpes

REACTIONS (8)
  - Lip blister [Unknown]
  - Dry mouth [Unknown]
  - Mental disorder [Unknown]
  - General physical health deterioration [Unknown]
  - Product use in unapproved indication [Unknown]
  - Dry eye [Unknown]
  - Oral herpes [Not Recovered/Not Resolved]
  - Oral herpes [Recovered/Resolved]
